FAERS Safety Report 5633625-6 (Version None)
Quarter: 2008Q1

REPORT INFORMATION
  Report Type: 
  Country: None (occurrence: None)
  Receive Date: 20080221
  Receipt Date: 20080212
  Transmission Date: 20080703
  Serious: Yes (Other)
  Sender: FDA-Public Use
  Company Number: CH-ASTRAZENECA-2008PK00317

PATIENT
  Age: 27 Year
  Sex: Female

DRUGS (6)
  1. BELOC ZOK [Suspect]
     Indication: ESSENTIAL HYPERTENSION
     Route: 048
  2. SEROQUEL [Suspect]
     Indication: SCHIZOPHRENIA
     Route: 048
  3. SORTIS [Suspect]
     Indication: HYPERLIPIDAEMIA
     Route: 048
     Dates: start: 20070113
  4. XANAX [Suspect]
     Indication: DEPRESSION
     Route: 048
     Dates: start: 20070123
  5. EFFEXOR [Suspect]
     Indication: DEPRESSION
     Route: 048
  6. ELTROXIN [Concomitant]
     Indication: HYPOTHYROIDISM
     Route: 048

REACTIONS (2)
  - ABORTION INDUCED [None]
  - DRUG EXPOSURE DURING PREGNANCY [None]
